FAERS Safety Report 7550469 (Version 5)
Quarter: 2013Q3

REPORT INFORMATION
  Report Type: Spontaneous
  Country: US (occurrence: US)
  Receive Date: 20100823
  Receipt Date: 20130917
  Transmission Date: 20140515
  Serious: Yes (Other)
  Sender: FDA-Public Use
  Company Number: US-JNJFOC-20100804430

PATIENT
  Age: 31 Year
  Sex: Female
  Weight: 79.83 kg

DRUGS (2)
  1. REMICADE [Suspect]
     Indication: CROHN^S DISEASE
     Route: 042
     Dates: start: 200512, end: 20100726
  2. CLARITIN [Concomitant]
     Indication: PREMEDICATION
     Route: 048
     Dates: start: 20100504

REACTIONS (12)
  - Exposure during pregnancy [Recovered/Resolved]
  - Impaired healing [Not Recovered/Not Resolved]
  - Metabolic disorder [Not Recovered/Not Resolved]
  - Paraesthesia [Recovered/Resolved]
  - Fatigue [Recovered/Resolved]
  - Chest discomfort [Recovered/Resolved]
  - Infusion related reaction [Recovered/Resolved]
  - Dyspnoea [Recovered/Resolved]
  - Abdominal rigidity [Recovered/Resolved]
  - Abdominal pain [Recovered/Resolved]
  - Oropharyngeal pain [Recovered/Resolved]
  - Rash [Recovered/Resolved]
